FAERS Safety Report 24936740 (Version 1)
Quarter: 2025Q1

REPORT INFORMATION
  Report Type: Spontaneous
  Country: US (occurrence: US)
  Receive Date: 20250206
  Receipt Date: 20250206
  Transmission Date: 20250409
  Serious: Yes (Other)
  Sender: BAYER HEALTHCARE LLC
  Company Number: US-BAYER-2025A015161

PATIENT

DRUGS (1)
  1. ALKA-SELTZER PLUS NOS [Suspect]
     Active Substance: UNSPECIFIED INGREDIENT

REACTIONS (2)
  - Choking [Unknown]
  - Oesophageal injury [Unknown]
